FAERS Safety Report 25674212 (Version 1)
Quarter: 2025Q3

REPORT INFORMATION
  Report Type: Spontaneous
  Country: EU (occurrence: EU)
  Receive Date: 20250813
  Receipt Date: 20250813
  Transmission Date: 20251020
  Serious: Yes (Death)
  Sender: IMMUNOCORE
  Company Number: EU-Medison-001494

PATIENT

DRUGS (1)
  1. TEBENTAFUSP [Suspect]
     Active Substance: TEBENTAFUSP
     Indication: Metastatic ocular melanoma
     Route: 042
     Dates: start: 2025, end: 202506

REACTIONS (2)
  - Death [Fatal]
  - Product dose omission issue [Unknown]
